FAERS Safety Report 9229148 (Version 1)
Quarter: 2013Q2

REPORT INFORMATION
  Report Type: Spontaneous
  Country: IN (occurrence: IN)
  Receive Date: 20130412
  Receipt Date: 20130412
  Transmission Date: 20140414
  Serious: Yes (Other)
  Sender: FDA-Public Use
  Company Number: IN-WATSON-2013-06795

PATIENT
  Age: 8 Year
  Sex: Male
  Weight: 25 kg

DRUGS (3)
  1. ISOFLURANE (WATSON LABORATORIES) [Suspect]
     Indication: ANAESTHESIA
     Dosage: UNK, SINGLE
     Route: 055
  2. VECURONIUM [Concomitant]
     Indication: ANAESTHESIA
     Dosage: INTERMITTENT BOLUSES
     Route: 040
  3. PROPOFOL [Concomitant]
     Indication: INDUCTION OF ANAESTHESIA
     Dosage: UNK
     Route: 065

REACTIONS (1)
  - Obstructive airways disorder [Recovered/Resolved]
